FAERS Safety Report 11526417 (Version 1)
Quarter: 2015Q3

REPORT INFORMATION
  Report Type: Spontaneous
  Country: US (occurrence: US)
  Receive Date: 20150903
  Receipt Date: 20150903
  Transmission Date: 20151125
  Serious: Yes (Other)
  Sender: FDA-Public Use
  Company Number: US-ELI_LILLY_AND_COMPANY-US201309007576

PATIENT
  Age: 39 Year
  Sex: Female

DRUGS (3)
  1. ALCOHOL. [Concomitant]
     Active Substance: ALCOHOL
  2. LAMICTAL [Suspect]
     Active Substance: LAMOTRIGINE
  3. CYMBALTA [Suspect]
     Active Substance: DULOXETINE HYDROCHLORIDE

REACTIONS (4)
  - Suicidal ideation [Recovered/Resolved]
  - Abnormal behaviour [Recovered/Resolved]
  - Alcohol problem [Recovered/Resolved]
  - Aggression [Recovered/Resolved]

NARRATIVE: CASE EVENT DATE: 201210
